FAERS Safety Report 8798287 (Version 3)
Quarter: 2014Q1

REPORT INFORMATION
  Report Type: Report from Study
  Country: GB (occurrence: GB)
  Receive Date: 20120920
  Receipt Date: 20140131
  Transmission Date: 20141002
  Serious: Yes (Hospitalization)
  Sender: FDA-Public Use
  Company Number: GB-ROCHE-1088389

PATIENT
  Age: 69 Year
  Sex: Female
  Weight: 66.2 kg

DRUGS (17)
  1. BLINDED PERTUZUMAB [Suspect]
     Indication: BREAST CANCER
     Dosage: LOADING DOSE
     Route: 042
     Dates: start: 20120612, end: 20120612
  2. BLINDED PERTUZUMAB [Suspect]
     Dosage: MAINTAINANCE DOSE?THE LAST DOSE RECEIVED ON 22/AUG/2012.
     Route: 042
  3. TRASTUZUMAB [Suspect]
     Indication: BREAST CANCER
     Route: 042
     Dates: start: 20120612, end: 20120612
  4. TRASTUZUMAB [Suspect]
     Dosage: MAINTAINANCE DOSE (400 MG)?DATE OF LAST DOSE PRIOR TO SAE 22/AUG/2012
     Route: 042
  5. DOCETAXEL [Suspect]
     Indication: BREAST CANCER
     Route: 042
     Dates: start: 20120822
  6. DOCETAXEL [Suspect]
     Route: 042
  7. DOCETAXEL [Suspect]
     Route: 065
     Dates: start: 20120801
  8. CARBOPLATIN [Suspect]
     Indication: BREAST CANCER
     Route: 042
     Dates: start: 20120822
  9. CARBOPLATIN [Suspect]
     Route: 042
  10. CARBOPLATIN [Suspect]
     Route: 065
     Dates: start: 20120801
  11. LANSOPRAZOLE [Concomitant]
     Route: 065
     Dates: start: 20120703
  12. LANSOPRAZOLE [Concomitant]
     Route: 065
     Dates: start: 20120808
  13. LANSOPRAZOLE [Concomitant]
     Route: 065
     Dates: start: 20120712
  14. THYROXINE [Concomitant]
     Route: 065
     Dates: start: 2004
  15. THYROXINE [Concomitant]
     Route: 065
     Dates: start: 20120719
  16. SUCRATE [Concomitant]
     Route: 065
     Dates: start: 20120710
  17. DOMPERIDONE [Concomitant]
     Route: 065
     Dates: start: 20120704

REACTIONS (5)
  - Malaise [Unknown]
  - Dehydration [Recovered/Resolved]
  - Malaise [Recovered/Resolved]
  - Nausea [Recovered/Resolved]
  - Vomiting [Recovered/Resolved]
